APPROVED DRUG PRODUCT: WELCHOL
Active Ingredient: COLESEVELAM HYDROCHLORIDE
Strength: 375MG
Dosage Form/Route: CAPSULE;ORAL
Application: N021141 | Product #001
Applicant: COSETTE PHARMACEUTICALS INC
Approved: May 26, 2000 | RLD: No | RS: No | Type: DISCN